FAERS Safety Report 7760710-5 (Version None)
Quarter: 2011Q3

REPORT INFORMATION
  Report Type: 
  Country: None (occurrence: None)
  Receive Date: 20110919
  Receipt Date: 20110915
  Transmission Date: 20111222
  Serious: Yes (Hospitalization)
  Sender: FDA-Public Use
  Company Number: FR-ABBOTT-11P-056-0855319-00

PATIENT
  Sex: Male

DRUGS (5)
  1. COLCHICINE [Suspect]
     Route: 048
     Dates: start: 20110810, end: 20110813
  2. COLCHICINE [Suspect]
     Indication: GOUT
     Route: 048
     Dates: start: 20110808, end: 20110808
  3. ATORVASTATIN CALCIUM [Suspect]
     Indication: MYOCARDIAL ISCHAEMIA
     Route: 048
     Dates: end: 20110813
  4. PERINDOPRIL ERBUMINE [Suspect]
     Indication: MYOCARDIAL ISCHAEMIA
     Route: 048
     Dates: end: 20110813
  5. COLCHICINE [Suspect]
     Route: 048
     Dates: start: 20110809, end: 20110809

REACTIONS (4)
  - HYPERTENSION [None]
  - RHABDOMYOLYSIS [None]
  - RENAL FAILURE ACUTE [None]
  - METABOLIC ACIDOSIS [None]
